FAERS Safety Report 12973087 (Version 1)
Quarter: 2016Q4

REPORT INFORMATION
  Report Type: Spontaneous
  Country: SE (occurrence: SE)
  Receive Date: 20161124
  Receipt Date: 20161124
  Transmission Date: 20170207
  Serious: Yes (Other)
  Sender: FDA-Public Use
  Company Number: SE-JNJFOC-20161121894

PATIENT
  Sex: Male

DRUGS (2)
  1. IPREN [Suspect]
     Active Substance: IBUPROFEN
     Indication: PAIN
     Route: 065
  2. IPREN [Suspect]
     Active Substance: IBUPROFEN
     Route: 065

REACTIONS (3)
  - Gastrointestinal ulcer perforation [Unknown]
  - Gastrointestinal ulcer [Unknown]
  - Gastrointestinal ulcer haemorrhage [Unknown]
